FAERS Safety Report 14252700 (Version 1)
Quarter: 2017Q4

REPORT INFORMATION
  Report Type: Spontaneous
  Country: US (occurrence: US)
  Receive Date: 20171205
  Receipt Date: 20171205
  Transmission Date: 20180321
  Serious: No
  Sender: FDA-Public Use
  Company Number: US-CELGENEUS-USA-20171109909

PATIENT
  Age: 68 Year
  Sex: Male
  Weight: 64.01 kg

DRUGS (1)
  1. POMALYST [Suspect]
     Active Substance: POMALIDOMIDE
     Indication: PLASMA CELL MYELOMA
     Dosage: 2 MILLIGRAM
     Route: 048
     Dates: start: 201708, end: 2017

REACTIONS (3)
  - Dyspnoea [Unknown]
  - Asthenia [Unknown]
  - Blood urine present [Unknown]

NARRATIVE: CASE EVENT DATE: 20171125
